FAERS Safety Report 13698720 (Version 1)
Quarter: 2017Q2

REPORT INFORMATION
  Report Type: Spontaneous
  Country: US (occurrence: US)
  Receive Date: 20170627
  Receipt Date: 20170627
  Transmission Date: 20170830
  Serious: Yes (Other)
  Sender: FDA-Public Use
  Company Number: None

PATIENT
  Age: 60 Year
  Sex: Female
  Weight: 109.3 kg

DRUGS (1)
  1. RITUXAN [Suspect]
     Active Substance: RITUXIMAB
     Indication: RHEUMATOID ARTHRITIS
     Dosage: OTHER DOSE:MG;OTHER FREQUENCY:Q 6 MONTHS;?
     Route: 042

REACTIONS (5)
  - Blood glucose increased [None]
  - Pharyngeal oedema [None]
  - Pruritus [None]
  - Cough [None]
  - Infusion related reaction [None]

NARRATIVE: CASE EVENT DATE: 20170627
